FAERS Safety Report 22367579 (Version 2)
Quarter: 2023Q2

REPORT INFORMATION
  Report Type: Report from Study
  Country: US (occurrence: US)
  Receive Date: 20230525
  Receipt Date: 20230604
  Transmission Date: 20230721
  Serious: Yes (Death, Other)
  Sender: FDA-Public Use
  Company Number: US-TEVA-2023-US-2891532

PATIENT
  Age: 7 Decade

DRUGS (5)
  1. ETOPOSIDE [Suspect]
     Active Substance: ETOPOSIDE
     Indication: Rosai-Dorfman syndrome
     Route: 065
  2. HYDROXYUREA [Suspect]
     Active Substance: HYDROXYUREA
     Indication: Rosai-Dorfman syndrome
     Route: 065
  3. COBIMETINIB [Suspect]
     Active Substance: COBIMETINIB
     Indication: Rosai-Dorfman syndrome
     Dosage: 20 MILLIGRAM DAILY; ONCE A DAY FOR 21 DAYS IN A 28-DAY CYCLE
     Route: 048
  4. CLADRIBINE [Suspect]
     Active Substance: CLADRIBINE
     Indication: Rosai-Dorfman syndrome
     Route: 065
  5. VINBLASTINE [Suspect]
     Active Substance: VINBLASTINE
     Indication: Rosai-Dorfman syndrome
     Route: 065

REACTIONS (3)
  - Myelodysplastic syndrome [Fatal]
  - Anaemia [Unknown]
  - Drug ineffective [Unknown]
